FAERS Safety Report 9750075 (Version 1)
Quarter: 2013Q4

REPORT INFORMATION
  Report Type: Spontaneous
  Country: US (occurrence: US)
  Receive Date: 20131212
  Receipt Date: 20131212
  Transmission Date: 20140711
  Serious: No
  Sender: FDA-Public Use
  Company Number: US-GILEAD-US-CVT-090815

PATIENT
  Sex: Female
  Weight: 50 kg

DRUGS (8)
  1. RANEXA [Suspect]
     Indication: ANGINA PECTORIS
     Dates: start: 2008, end: 2008
  2. RANEXA [Suspect]
     Dates: start: 20091129
  3. NORVASC                            /00972401/ [Concomitant]
     Indication: ANGINA PECTORIS
  4. IMDUR [Concomitant]
     Indication: ANGINA PECTORIS
  5. PLAVIX [Concomitant]
     Indication: ANGINA PECTORIS
  6. ASPIRIN                            /00002701/ [Concomitant]
     Indication: ANGINA PECTORIS
  7. CRESTOR                            /01588601/ [Concomitant]
     Indication: ANGINA PECTORIS
  8. COREG [Concomitant]

REACTIONS (2)
  - Flushing [Recovered/Resolved]
  - Wrong technique in drug usage process [Unknown]
